FAERS Safety Report 6057871-5 (Version None)
Quarter: 2009Q1

REPORT INFORMATION
  Report Type: 
  Country: None (occurrence: None)
  Receive Date: 20090129
  Receipt Date: 20090121
  Transmission Date: 20090719
  Serious: Yes (Death, Hospitalization)
  Sender: FDA-Public Use
  Company Number: US-BAYER-200814875BCC

PATIENT
  Age: 90 Year
  Sex: Female
  Weight: 64 kg

DRUGS (8)
  1. ASPIRIN [Suspect]
     Indication: DRUG USE FOR UNKNOWN INDICATION
     Dates: start: 20081128
  2. PLAVIX [Suspect]
     Indication: DRUG USE FOR UNKNOWN INDICATION
     Route: 048
     Dates: start: 20081201
  3. LOVENOX [Suspect]
     Indication: DRUG USE FOR UNKNOWN INDICATION
     Dates: start: 20081128
  4. INTEGRILIN [Suspect]
     Indication: DRUG USE FOR UNKNOWN INDICATION
  5. MECLIZINE [Concomitant]
  6. ALLEGRA D 24 HOUR [Concomitant]
  7. ZOLOFT [Concomitant]
  8. AZITHROMYCIN [Concomitant]

REACTIONS (3)
  - DEATH [None]
  - RETROPERITONEAL HAEMORRHAGE [None]
  - THROMBOSIS [None]
